FAERS Safety Report 9530966 (Version 1)
Quarter: 2013Q3

REPORT INFORMATION
  Report Type: Spontaneous
  Country: US (occurrence: US)
  Receive Date: 20130918
  Receipt Date: 20130918
  Transmission Date: 20140515
  Serious: Yes (Hospitalization)
  Sender: FDA-Public Use
  Company Number: US-BAYER-2013-110601

PATIENT
  Age: 22 Year
  Sex: Female

DRUGS (8)
  1. YASMIN [Suspect]
  2. BIAXIN [Concomitant]
     Dosage: 500 MG, UNK
  3. EFFEXOR [Concomitant]
     Indication: DEPRESSION
     Dosage: 75 MG, UNK
  4. ARIXTRA [Concomitant]
  5. PEPCID [Concomitant]
  6. PERCOCET [Concomitant]
  7. FROVA [Concomitant]
  8. LEXAPRO [Concomitant]

REACTIONS (3)
  - Pulmonary embolism [Recovered/Resolved]
  - Deep vein thrombosis [Recovered/Resolved]
  - Phlebitis superficial [Recovered/Resolved]
